FAERS Safety Report 22990993 (Version 3)
Quarter: 2023Q4

REPORT INFORMATION
  Report Type: Report from Study
  Country: TR (occurrence: TR)
  Receive Date: 20230927
  Receipt Date: 20231003
  Transmission Date: 20240110
  Serious: Yes (Death, Life-Threatening, Other)
  Sender: FDA-Public Use
  Company Number: TR-009507513-2308TUR002344

PATIENT
  Age: 58 Year
  Sex: Male
  Weight: 61 kg

DRUGS (11)
  1. SACITUZUMAB GOVITECAN-HZIY [Suspect]
     Active Substance: SACITUZUMAB GOVITECAN-HZIY
     Indication: Non-small cell lung cancer metastatic
     Dosage: 10 MILLIGRAM/KILOGRAM, ON DAYS 1 AND 8, Q3W
     Route: 042
     Dates: start: 20230801, end: 20230801
  2. PEMBROLIZUMAB [Suspect]
     Active Substance: PEMBROLIZUMAB
     Indication: Non-small cell lung cancer metastatic
     Dosage: 200 MILLIGRAM, Q3W
     Route: 042
     Dates: start: 20230801, end: 20230801
  3. RAMIPRIL [Concomitant]
     Active Substance: RAMIPRIL
     Indication: Coronary artery disease
     Dosage: 5 MILLIGRAM, QD
     Route: 048
     Dates: start: 201501
  4. NORVASC [Concomitant]
     Active Substance: AMLODIPINE BESYLATE
     Indication: Coronary artery disease
     Dosage: 10 MILLIGRAM, QD
     Route: 048
     Dates: start: 201501
  5. METOPROLOL [Concomitant]
     Active Substance: METOPROLOL
     Indication: Coronary artery disease
     Dosage: 25 MILLIGRAM, QD
     Route: 048
     Dates: start: 201501
  6. VOCHERON [Concomitant]
     Indication: Prophylaxis of nausea and vomiting
  7. OMNIPAQUE [Concomitant]
     Active Substance: IOHEXOL
     Indication: Prophylaxis
     Dosage: 300 MILLIGRAM, ONCE
     Route: 042
     Dates: start: 20230722, end: 20230722
  8. CLARISCAN [Concomitant]
     Active Substance: GADOTERATE MEGLUMINE
     Indication: Prophylaxis
     Dosage: 20 MILLILITER, ONCE
     Route: 042
     Dates: start: 20230722, end: 20230722
  9. SETREX [Concomitant]
     Indication: Premedication
     Dosage: UNK, ONCE
     Route: 042
     Dates: start: 20230801, end: 20230801
  10. PHENIRAMINE [Concomitant]
     Active Substance: PHENIRAMINE
     Indication: Premedication
     Dosage: 45.5 MILLIGRAM, ONCE
     Route: 042
     Dates: start: 20230801, end: 20230801
  11. SODIUM CHLORIDE [Concomitant]
     Active Substance: SODIUM CHLORIDE
     Dosage: 3 DOSAGE FORM, TID
     Route: 042
     Dates: start: 20230802, end: 20230802

REACTIONS (2)
  - Hyponatraemia [Recovered/Resolved]
  - Pulmonary sepsis [Fatal]

NARRATIVE: CASE EVENT DATE: 20230802
